FAERS Safety Report 23295437 (Version 1)
Quarter: 2023Q4

REPORT INFORMATION
  Report Type: Spontaneous
  Country: US (occurrence: US)
  Receive Date: 20231214
  Receipt Date: 20231214
  Transmission Date: 20240110
  Serious: No
  Sender: FDA-Public Use
  Company Number: US-ALVOGEN-2023091621

PATIENT
  Age: 42 Year
  Sex: Female

DRUGS (1)
  1. FENTANYL [Suspect]
     Active Substance: FENTANYL\FENTANYL CITRATE
     Indication: Analgesic therapy
     Dosage: STRENGTH: 100 MCG/ HR?EXPIRATION DATE: UU-JUL-2025?MANUFACTURING DATE: 25-JUL-2022
     Route: 062
     Dates: start: 20230525

REACTIONS (2)
  - Device adhesion issue [Unknown]
  - Device malfunction [Unknown]

NARRATIVE: CASE EVENT DATE: 20230525
